FAERS Safety Report 13561874 (Version 1)
Quarter: 2017Q2

REPORT INFORMATION
  Report Type: Spontaneous
  Country: IT (occurrence: IT)
  Receive Date: 20170518
  Receipt Date: 20170518
  Transmission Date: 20170830
  Serious: Yes (Other)
  Sender: FDA-Public Use
  Company Number: IT-MYLANLABS-2017M1029653

PATIENT

DRUGS (1)
  1. MEMANTINE MYLAN 20 MG FILM-COATED TABLETS [Suspect]
     Active Substance: MEMANTINE
     Indication: DEMENTIA ALZHEIMER^S TYPE
     Dosage: 20 MG DAILY
     Route: 048
     Dates: start: 20161116, end: 20170427

REACTIONS (2)
  - Dementia Alzheimer^s type [Unknown]
  - Drug ineffective [Unknown]

NARRATIVE: CASE EVENT DATE: 20170428
